FAERS Safety Report 21544889 (Version 1)
Quarter: 2022Q4

REPORT INFORMATION
  Report Type: Spontaneous
  Country: US (occurrence: None)
  Receive Date: 20221101
  Receipt Date: 20221101
  Transmission Date: 20230112
  Serious: Yes (Hospitalization)
  Sender: FDA-Public Use
  Company Number: None

PATIENT
  Age: 61 Year
  Sex: Female

DRUGS (1)
  1. CAPECITABINE [Suspect]
     Active Substance: CAPECITABINE
     Indication: Appendix cancer
     Dosage: OTHER QUANTITY : 2000;?FREQUENCY : TWICE A DAY;?
     Route: 048
     Dates: start: 20221014

REACTIONS (1)
  - Appendicitis perforated [None]

NARRATIVE: CASE EVENT DATE: 20221030
